FAERS Safety Report 5671591-8 (Version None)
Quarter: 2008Q1

REPORT INFORMATION
  Report Type: 
  Country: None (occurrence: None)
  Receive Date: 20080313
  Receipt Date: 20080305
  Transmission Date: 20080703
  Serious: Yes (Life-Threatening, Hospitalization, Disabling)
  Sender: FDA-Public Use
  Company Number: CERZ-1000052

PATIENT
  Age: 3 Month
  Sex: Male
  Weight: 7 kg

DRUGS (6)
  1. CEREZYME (IMIGLUCERASE) POWDER FOR SOLUTION FOR INFUSION [Suspect]
     Indication: GAUCHER'S DISEASE
     Dosage: 400 U, Q2W, INTRAVENOUS
     Route: 042
     Dates: start: 20060927
  2. CARBAMAZEPINE [Concomitant]
  3. CLONAZEPAM [Concomitant]
  4. VALPROATE SODIUM [Concomitant]
  5. ZONISAMIDE [Concomitant]
  6. TRICHLORETHYL PHOSPHATE SODIUM [Concomitant]

REACTIONS (10)
  - BRONCHITIS [None]
  - DEHYDRATION [None]
  - DISEASE RECURRENCE [None]
  - GASTROENTERITIS [None]
  - NASOPHARYNGITIS [None]
  - PNEUMONIA ASPIRATION [None]
  - PNEUMONIA RESPIRATORY SYNCYTIAL VIRAL [None]
  - RESPIRATORY ARREST [None]
  - RESPIRATORY FAILURE [None]
  - STATUS EPILEPTICUS [None]
